FAERS Safety Report 7397068-X (Version None)
Quarter: 2011Q2

REPORT INFORMATION
  Report Type: 
  Country: None (occurrence: None)
  Receive Date: 20110406
  Receipt Date: 20110329
  Transmission Date: 20111010
  Serious: Yes (Hospitalization)
  Sender: FDA-Public Use
  Company Number: A0773163A

PATIENT
  Age: 61 Year
  Sex: Male
  Weight: 104 kg

DRUGS (8)
  1. FORTAMET [Concomitant]
  2. AVANDIA [Suspect]
     Indication: DIABETES MELLITUS
     Dosage: 4MG PER DAY
     Route: 048
     Dates: start: 20050301, end: 20060101
  3. METFORMIN [Concomitant]
  4. AMARYL [Concomitant]
  5. AVANDARYL [Suspect]
     Indication: DIABETES MELLITUS
     Route: 048
     Dates: start: 20060630, end: 20061201
  6. AVANDAMET [Suspect]
     Indication: DIABETES MELLITUS
     Route: 048
     Dates: start: 20040701, end: 20060301
  7. LISINOPRIL [Concomitant]
  8. CRESTOR [Concomitant]

REACTIONS (5)
  - CORONARY ARTERY DISEASE [None]
  - ARTERIOSCLEROSIS [None]
  - MYOCARDIAL INFARCTION [None]
  - CARDIAC FAILURE CONGESTIVE [None]
  - ISCHAEMIC CARDIOMYOPATHY [None]
